FAERS Safety Report 15275750 (Version 1)
Quarter: 2018Q3

REPORT INFORMATION
  Report Type: Spontaneous
  Country: US (occurrence: US)
  Receive Date: 20180727
  Receipt Date: 20180727
  Transmission Date: 20181010
  Serious: Yes (Hospitalization)
  Sender: FDA-Public Use
  Company Number: None

PATIENT
  Age: 59 Year
  Sex: Female

DRUGS (20)
  1. ACYCLOVIR. [Concomitant]
     Active Substance: ACYCLOVIR
  2. AMIODARONE [Concomitant]
     Active Substance: AMIODARONE
  3. HEPARIN [Concomitant]
     Active Substance: HEPARIN SODIUM
  4. LEVOTHYROXINE. [Concomitant]
     Active Substance: LEVOTHYROXINE
  5. LIDOCAINE. [Concomitant]
     Active Substance: LIDOCAINE
  6. MIRTAZAPINE. [Concomitant]
     Active Substance: MIRTAZAPINE
  7. HALOPERIDOL. [Suspect]
     Active Substance: HALOPERIDOL
     Route: 042
  8. ASPIRIN. [Concomitant]
     Active Substance: ASPIRIN
  9. EPOETIN [Concomitant]
     Active Substance: ERYTHROPOIETIN
  10. INSULIN ASPART [Concomitant]
     Active Substance: INSULIN ASPART
  11. MIDODRINE [Concomitant]
     Active Substance: MIDODRINE
  12. PREDNISONE. [Concomitant]
     Active Substance: PREDNISONE
  13. TACROLIMUS. [Concomitant]
     Active Substance: TACROLIMUS
  14. LANSOPRAZOLE. [Concomitant]
     Active Substance: LANSOPRAZOLE
  15. SULFAMETHOXAZOLE/TRIMETHOPRIM [Concomitant]
     Active Substance: SULFAMETHOXAZOLE\TRIMETHOPRIM
  16. AZATHIOPRINE. [Concomitant]
     Active Substance: AZATHIOPRINE
  17. DIPHENHYDRAMINE. [Suspect]
     Active Substance: DIPHENHYDRAMINE
     Indication: SEDATION
     Route: 042
     Dates: start: 20180315, end: 20180315
  18. NYSTATIN ORAL LIQUID [Concomitant]
     Active Substance: NYSTATIN
  19. ONDANSETRON [Concomitant]
     Active Substance: ONDANSETRON
  20. OSELTAMIVIR [Concomitant]
     Active Substance: OSELTAMIVIR

REACTIONS (1)
  - Respiratory failure [None]

NARRATIVE: CASE EVENT DATE: 20180315
